FAERS Safety Report 7715253-1 (Version None)
Quarter: 2011Q3

REPORT INFORMATION
  Report Type: 
  Country: None (occurrence: None)
  Receive Date: 20110829
  Receipt Date: 20110823
  Transmission Date: 20111222
  Serious: Yes (Hospitalization)
  Sender: FDA-Public Use
  Company Number: PHHY2011DE75745

PATIENT
  Age: 83 Year
  Sex: Male
  Weight: 80 kg

DRUGS (2)
  1. STALEVO 100 [Suspect]
     Indication: PARKINSON'S DISEASE
     Dosage: 300 MG/600 MG, UNK
     Route: 048
     Dates: start: 20100630, end: 20110218
  2. PRAMIPEXOLE DIHYDROCHLORIDE [Suspect]
     Indication: PARKINSON'S DISEASE
     Dosage: 2.8 MG, UNK
     Route: 048
     Dates: start: 20100630, end: 20110218

REACTIONS (2)
  - HALLUCINATION, VISUAL [None]
  - DELIRIUM [None]
